FAERS Safety Report 6441628-7 (Version None)
Quarter: 2009Q4

REPORT INFORMATION
  Report Type: 
  Country: None (occurrence: None)
  Receive Date: 20091116
  Receipt Date: 20091105
  Transmission Date: 20100525
  Serious: Yes (Hospitalization, Other)
  Sender: FDA-Public Use
  Company Number: US-AMGEN-QUU370833

PATIENT
  Sex: Female

DRUGS (1)
  1. ENBREL [Suspect]
     Indication: RHEUMATOID ARTHRITIS
     Route: 058

REACTIONS (6)
  - CAUSTIC INJURY [None]
  - DIABETIC FOOT [None]
  - DIABETIC GANGRENE [None]
  - METATARSAL EXCISION [None]
  - RHEUMATOID ARTHRITIS [None]
  - RHEUMATOID NODULE [None]
